FAERS Safety Report 16874254 (Version 1)
Quarter: 2019Q4

REPORT INFORMATION
  Report Type: Spontaneous
  Country: GB (occurrence: GB)
  Receive Date: 20191001
  Receipt Date: 20191001
  Transmission Date: 20200122
  Serious: Yes (Other)
  Sender: FDA-Public Use
  Company Number: GB-MYLANLABS-MK-6029583

PATIENT
  Sex: Male

DRUGS (1)
  1. CIPROFLOXACIN. [Suspect]
     Active Substance: CIPROFLOXACIN
     Indication: PRODUCT USED FOR UNKNOWN INDICATION
     Dosage: 10 DAYS COURSE
     Route: 065

REACTIONS (3)
  - Nightmare [Recovered/Resolved with Sequelae]
  - Screaming [Recovered/Resolved with Sequelae]
  - Hallucination [Recovered/Resolved with Sequelae]
